FAERS Safety Report 4688273-1 (Version None)
Quarter: 2005Q2

REPORT INFORMATION
  Report Type: 
  Country: None (occurrence: None)
  Receive Date: 20050609
  Receipt Date: 20050527
  Transmission Date: 20051028
  Serious: Yes (Hospitalization)
  Sender: FDA-Public Use
  Company Number: 2003019833

PATIENT
  Age: 68 Year
  Sex: Male

DRUGS (3)
  1. DOXAZOSIN (DOXAZOSIN) [Suspect]
     Indication: HYPERTENSION
  2. SALMETEROL (SALMETEROL) [Concomitant]
  3. FLIXOTIDE   GLAXO   (FLUTICASONE PROPIONATE) [Concomitant]

REACTIONS (10)
  - ARRHYTHMIA [None]
  - ATRIAL FLUTTER [None]
  - CHEST PAIN [None]
  - CHEST X-RAY ABNORMAL [None]
  - HYPERGLYCAEMIA [None]
  - NEUTROPHIL PERCENTAGE INCREASED [None]
  - PALPITATIONS [None]
  - PYREXIA [None]
  - SINUS TACHYCARDIA [None]
  - WHITE BLOOD CELL COUNT INCREASED [None]
